FAERS Safety Report 18886308 (Version 3)
Quarter: 2021Q1

REPORT INFORMATION
  Report Type: Report from Study
  Country: CA (occurrence: CA)
  Receive Date: 20210212
  Receipt Date: 20210316
  Transmission Date: 20210420
  Serious: Yes (Other)
  Sender: FDA-Public Use
  Company Number: CA-JNJFOC-20210214058

PATIENT
  Age: 26 Year
  Sex: Male
  Weight: 87.2 kg

DRUGS (3)
  1. REMICADE [Suspect]
     Active Substance: INFLIXIMAB
     Indication: COLITIS ULCERATIVE
     Dosage: LAST INFUSION ON 06?FEB?2021
     Route: 042
     Dates: start: 20201013, end: 20210206
  2. VITAMIN D [ERGOCALCIFEROL] [Concomitant]
     Active Substance: ERGOCALCIFEROL
     Indication: PRODUCT USED FOR UNKNOWN INDICATION
     Route: 065
  3. CALCIUM;COLECALCIFEROL [Concomitant]
     Active Substance: CALCIUM\CHOLECALCIFEROL
     Indication: PRODUCT USED FOR UNKNOWN INDICATION
     Route: 065

REACTIONS (21)
  - Anxiety [Recovered/Resolved]
  - Chest discomfort [Recovered/Resolved]
  - Dyspnoea [Recovering/Resolving]
  - Depressed mood [Recovering/Resolving]
  - Agitation [Recovering/Resolving]
  - Drug specific antibody present [Unknown]
  - Stress [Recovering/Resolving]
  - Fatigue [Recovering/Resolving]
  - Rhinorrhoea [Unknown]
  - Infusion related reaction [Recovering/Resolving]
  - Malaise [Recovered/Resolved]
  - Drug level decreased [Unknown]
  - Mental disorder [Recovered/Resolved]
  - Body temperature increased [Recovering/Resolving]
  - Blood pressure increased [Recovering/Resolving]
  - Fear [Recovered/Resolved]
  - Tremor [Recovering/Resolving]
  - Flushing [Recovering/Resolving]
  - Chills [Recovering/Resolving]
  - Heart rate decreased [Recovering/Resolving]
  - Headache [Unknown]

NARRATIVE: CASE EVENT DATE: 202012
